FAERS Safety Report 9402772 (Version 1)
Quarter: 2013Q3

REPORT INFORMATION
  Report Type: Spontaneous
  Country: US (occurrence: US)
  Receive Date: 20130716
  Receipt Date: 20130716
  Transmission Date: 20140515
  Serious: Yes (Death, Other)
  Sender: FDA-Public Use
  Company Number: US-PFIZER INC-2013203746

PATIENT
  Age: 28 Year
  Sex: Male

DRUGS (5)
  1. OXYCODONE HYDROCHLORIDE [Suspect]
     Dosage: UNK
  2. HYDROXYZINE PAMOATE [Suspect]
     Dosage: 180 (50 MG) TABLETS WERE TAKEN OVER 53 DAYS
  3. ACETAMINOPHEN [Concomitant]
     Dosage: UNK
  4. QUETIAPINE [Concomitant]
     Dosage: UNK
  5. TRAZODONE [Concomitant]
     Dosage: UNK

REACTIONS (4)
  - Toxicity to various agents [Fatal]
  - Depressed level of consciousness [Unknown]
  - Pulmonary congestion [Unknown]
  - Urinary retention [Unknown]
